FAERS Safety Report 15050179 (Version 2)
Quarter: 2018Q3

REPORT INFORMATION
  Report Type: Spontaneous
  Country: IR (occurrence: IR)
  Receive Date: 20180622
  Receipt Date: 20180705
  Transmission Date: 20181010
  Serious: Yes (Death, Other)
  Sender: FDA-Public Use
  Company Number: IR-AMGEN-IRNSP2018084504

PATIENT
  Age: 57 Year
  Sex: Male

DRUGS (11)
  1. AZATHIOPRIN [Concomitant]
     Active Substance: AZATHIOPRINE
     Dosage: 100 MG, QD
     Dates: start: 2003
  2. FOLIC ACID. [Concomitant]
     Active Substance: FOLIC ACID
     Dosage: UNK UNK, DAILY
     Dates: start: 2003
  3. ENBREL [Suspect]
     Active Substance: ETANERCEPT
     Indication: PSORIATIC ARTHROPATHY
     Dosage: 50 MG, QWK
     Route: 058
     Dates: start: 2006, end: 2015
  4. PREDNISOLON /00016201/ [Concomitant]
     Active Substance: PREDNISOLONE
     Dosage: 5 MG, DAILY
  5. VITAMIN D3 [Concomitant]
     Active Substance: CHOLECALCIFEROL
     Dosage: 1000 IU, QD
     Dates: start: 2003
  6. ALENDRONATE [Concomitant]
     Active Substance: ALENDRONATE SODIUM
     Dosage: 70 MG, QWK
  7. CALCIUM PLUS VITAMIN D [Concomitant]
     Active Substance: CALCIUM\VITAMIN D
     Dosage: 500 MG, QD
     Dates: start: 2003
  8. PREDNISOLON /00016201/ [Concomitant]
     Active Substance: PREDNISOLONE
     Dosage: 7.5 MG, DAILY
     Dates: start: 2003
  9. ENBREL [Suspect]
     Active Substance: ETANERCEPT
     Dosage: UNK
     Route: 065
  10. METHOTREXATE (METHOTREXATE SODIUM) [Concomitant]
     Active Substance: METHOTREXATE SODIUM
     Dosage: 25 MG, QWK
     Route: 058
     Dates: start: 2003
  11. ARAVA [Concomitant]
     Active Substance: LEFLUNOMIDE
     Dosage: 20 MG, QD
     Dates: start: 2003

REACTIONS (7)
  - Neuropathy peripheral [Unknown]
  - Gastric cancer [Unknown]
  - Hypoaesthesia [Unknown]
  - Anaemia [Unknown]
  - Death [Fatal]
  - Deafness [Unknown]
  - Weight decreased [Unknown]

NARRATIVE: CASE EVENT DATE: 201608
